FAERS Safety Report 9548605 (Version 1)
Quarter: 2013Q3

REPORT INFORMATION
  Report Type: Spontaneous
  Country: NL (occurrence: NL)
  Receive Date: 20130924
  Receipt Date: 20130924
  Transmission Date: 20140515
  Serious: Yes (Hospitalization)
  Sender: FDA-Public Use
  Company Number: NL-PFIZER INC-2013270607

PATIENT
  Age: 68 Year
  Sex: Female
  Weight: 75 kg

DRUGS (5)
  1. DOXYCYCLINE HYCLATE [Suspect]
     Indication: LOWER RESPIRATORY TRACT INFECTION
     Dosage: 200 MG, 1X/DAY
     Dates: start: 20130905, end: 20130905
  2. DOXYCYCLINE HYCLATE [Suspect]
     Dosage: 100 MG, 1X/DAY
     Dates: start: 20130906, end: 20130907
  3. SIMVASTATIN [Concomitant]
     Dosage: 40 MG, 1X/DAY
  4. LISINOPRIL [Concomitant]
     Dosage: 1 DF, 1X/DAY
  5. CALCICHEW-D3 [Concomitant]
     Dosage: 1 DF, 1X/DAY

REACTIONS (1)
  - Atrial fibrillation [Recovered/Resolved]
